FAERS Safety Report 8937223 (Version 1)
Quarter: 2012Q4

REPORT INFORMATION
  Report Type: Spontaneous
  Country: US (occurrence: None)
  Receive Date: 20121128
  Receipt Date: 20121128
  Transmission Date: 20130627
  Serious: No
  Sender: FDA-Public Use
  Company Number: None

PATIENT
  Age: 53 Year
  Sex: Female
  Weight: 113.4 kg

DRUGS (1)
  1. MELOXICAM 15MG LUPIN [Suspect]
     Indication: OSTEOARTHRITIS
     Dosage: 1 Tablet Daily po
     Route: 048
     Dates: start: 20120101, end: 20120731

REACTIONS (3)
  - Retinal haemorrhage [None]
  - Retinal tear [None]
  - Vitreous floaters [None]
